FAERS Safety Report 4497372-9 (Version None)
Quarter: 2004Q4

REPORT INFORMATION
  Report Type: 
  Country: None (occurrence: None)
  Receive Date: 20041104
  Receipt Date: 20041025
  Transmission Date: 20050328
  Serious: Yes (Other)
  Sender: FDA-Public Use
  Company Number: 2004241301US

PATIENT
  Sex: Female

DRUGS (7)
  1. CELEBREX [Suspect]
     Indication: ARTHRALGIA
     Dosage: 200 MG, BID, ORAL
     Route: 048
     Dates: start: 19990201
  2. DIOVAN [Concomitant]
  3. SYNTHROID [Concomitant]
  4. RESTORIL [Concomitant]
  5. PREMARIN [Concomitant]
  6. CALCIUM [Concomitant]
  7. MULTIVITAMINS (ERGOCALCIFEROL, RETINOL, PANTHENOL) [Concomitant]

REACTIONS (4)
  - ANAEMIA [None]
  - ARTHRALGIA [None]
  - COLITIS ULCERATIVE [None]
  - POLYP [None]
